FAERS Safety Report 8028773-X (Version None)
Quarter: 2012Q1

REPORT INFORMATION
  Report Type: 
  Country: None (occurrence: None)
  Receive Date: 20120106
  Receipt Date: 20120104
  Transmission Date: 20120608
  Serious: Yes (Disabling)
  Sender: FDA-Public Use
  Company Number: US-MERCK-1112USA00572

PATIENT
  Age: 57 Year
  Sex: Female

DRUGS (8)
  1. ZOCOR [Suspect]
     Indication: BLOOD CHOLESTEROL INCREASED
     Route: 048
     Dates: start: 20111005, end: 20111123
  2. NAPROXEN [Concomitant]
     Route: 065
  3. CLOTRIMAZOLE [Concomitant]
     Route: 065
  4. BETAMETHASONE [Concomitant]
     Route: 065
  5. BACLOFEN [Concomitant]
     Route: 065
  6. VALTREX [Concomitant]
     Route: 065
  7. TOPAMAX [Concomitant]
     Route: 065
  8. PROVIGIL [Concomitant]
     Route: 065

REACTIONS (11)
  - INFLUENZA LIKE ILLNESS [None]
  - DYSSTASIA [None]
  - RED BLOOD CELL SEDIMENTATION RATE INCREASED [None]
  - ARTHRALGIA [None]
  - VITAMIN B12 DECREASED [None]
  - CHILLS [None]
  - ABASIA [None]
  - C-REACTIVE PROTEIN INCREASED [None]
  - TINEA INFECTION [None]
  - PAIN IN EXTREMITY [None]
  - PYREXIA [None]
